FAERS Safety Report 7772698-1 (Version None)
Quarter: 2011Q3

REPORT INFORMATION
  Report Type: 
  Country: None (occurrence: None)
  Receive Date: 20110922
  Receipt Date: 20110613
  Transmission Date: 20111222
  Serious: No
  Sender: FDA-Public Use
  Company Number: US-ASTRAZENECA-2009UW21583

PATIENT
  Age: 19201 Day
  Sex: Female
  Weight: 68 kg

DRUGS (12)
  1. SEROQUEL [Suspect]
     Indication: MANIA
     Route: 048
     Dates: start: 19990101
  2. ZESTRIL [Concomitant]
     Dates: start: 20040114
  3. SEROQUEL [Suspect]
     Dosage: 100 MG TID PLUS 300 MG QHS
     Route: 048
     Dates: start: 20040113
  4. KLONOPIN [Concomitant]
     Route: 048
     Dates: start: 20040113
  5. TRAZODONE HYDROCHLORIDE [Concomitant]
     Dates: start: 20040113
  6. REMERON [Concomitant]
     Dates: start: 20040113
  7. THORAZINE [Concomitant]
     Dosage: 25 MG BID PRN
     Dates: start: 20040114
  8. ASPIRIN [Concomitant]
     Dates: start: 20040114
  9. SEROQUEL [Suspect]
     Dosage: 100 MG TID PLUS 300 MG QHS
     Route: 048
     Dates: start: 20040113
  10. LEXAPRO [Concomitant]
     Dates: start: 20040113
  11. LEVOXYL [Concomitant]
     Dates: start: 20040114
  12. SEROQUEL [Suspect]
     Indication: BIPOLAR DISORDER
     Route: 048
     Dates: start: 19990101

REACTIONS (5)
  - HYPERLIPIDAEMIA [None]
  - BLOOD TRIGLYCERIDES INCREASED [None]
  - TYPE 2 DIABETES MELLITUS [None]
  - BLOOD CHOLESTEROL INCREASED [None]
  - VISUAL ACUITY REDUCED [None]
